FAERS Safety Report 9778995 (Version 1)
Quarter: 2013Q4

REPORT INFORMATION
  Report Type: Spontaneous
  Country: US (occurrence: US)
  Receive Date: 20131223
  Receipt Date: 20131223
  Transmission Date: 20140711
  Serious: Yes (Other)
  Sender: FDA-Public Use
  Company Number: US-BRISTOL-MYERS SQUIBB COMPANY-19919711

PATIENT
  Age: 91 Year
  Sex: Female

DRUGS (2)
  1. COUMADIN [Suspect]
     Dosage: FOR ABOUT 10 YRS
  2. SYNTHROID [Concomitant]

REACTIONS (2)
  - Lower limb fracture [Unknown]
  - International normalised ratio increased [Unknown]
